FAERS Safety Report 15882481 (Version 2)
Quarter: 2019Q2

REPORT INFORMATION
  Report Type: Spontaneous
  Country: JP (occurrence: JP)
  Receive Date: 20190129
  Receipt Date: 20190611
  Transmission Date: 20190711
  Serious: Yes (Other)
  Sender: FDA-Public Use
  Company Number: JP-SUN PHARMACEUTICAL INDUSTRIES LTD-2017R3-137096

PATIENT
  Age: 37 Year
  Sex: Female

DRUGS (4)
  1. FOLIC ACID. [Concomitant]
     Active Substance: FOLIC ACID
     Indication: EPILEPSY
     Dosage: 5 MILLIGRAM, DAILY
     Route: 048
  2. KOSOSAN [Concomitant]
     Indication: NASOPHARYNGITIS
     Dosage: 2.5 GRAM, TID
     Route: 048
     Dates: start: 20160606, end: 20160616
  3. TEGRETOL [Suspect]
     Active Substance: CARBAMAZEPINE
     Indication: EPILEPSY
     Dosage: 100 MILLIGRAM, DAILY
     Route: 048
  4. MAGMITT [Concomitant]
     Active Substance: MAGNESIUM OXIDE
     Indication: CONSTIPATION
     Dosage: 330 MILLIGRAM, TID
     Route: 048
     Dates: start: 20160606, end: 20160608

REACTIONS (4)
  - Live birth [Unknown]
  - Exposure during pregnancy [Unknown]
  - Low birth weight baby [Unknown]
  - Premature delivery [Unknown]

NARRATIVE: CASE EVENT DATE: 20160629
